FAERS Safety Report 5832286-0 (Version None)
Quarter: 2008Q3

REPORT INFORMATION
  Report Type: 
  Country: None (occurrence: None)
  Receive Date: 20080804
  Receipt Date: 20080730
  Transmission Date: 20090109
  Serious: Yes (Other)
  Sender: FDA-Public Use
  Company Number: A0699123A

PATIENT
  Age: 32 Year
  Sex: Female

DRUGS (2)
  1. LAMICTAL [Suspect]
     Dosage: 100MG TWICE PER DAY
     Route: 048
     Dates: start: 20040101
  2. YASMIN [Suspect]
     Dates: start: 20070101

REACTIONS (5)
  - AMNESIA [None]
  - CONVULSION [None]
  - DRUG EFFECT DECREASED [None]
  - ILL-DEFINED DISORDER [None]
  - PETIT MAL EPILEPSY [None]
